FAERS Safety Report 8974706 (Version 1)
Quarter: 2012Q4

REPORT INFORMATION
  Report Type: Report from Study
  Country: US (occurrence: US)
  Receive Date: 20121220
  Receipt Date: 20121220
  Transmission Date: 20130627
  Serious: Yes (Hospitalization, Other)
  Sender: FDA-Public Use
  Company Number: US-US-EMD SERONO, INC.-7099307

PATIENT
  Age: 41 Year
  Sex: Female
  Weight: 60 kg

DRUGS (9)
  1. MEK INHIBITOR [Suspect]
     Indication: ACUTE MYELOID LEUKAEMIA
     Route: 048
     Dates: start: 20111110, end: 20111115
  2. MEK INHIBITOR [Suspect]
     Route: 048
     Dates: start: 20111117, end: 20111130
  3. MEK INHIBITOR [Suspect]
     Route: 048
     Dates: start: 20111208
  4. POTASSIUM CHLORIDE SUSPENSION SLOW RELEASE [Concomitant]
     Indication: HYPOKALAEMIA
     Dosage: 20 mEq
     Route: 048
  5. FUROSEMIDE [Concomitant]
     Indication: CARDIAC FAILURE
     Route: 048
     Dates: start: 20111104
  6. LISINOPRIL [Concomitant]
     Indication: CARDIAC FAILURE
     Route: 048
     Dates: start: 20110429
  7. PROPRANOLOL HYDROCHLORIDE [Concomitant]
     Indication: CARDIAC FAILURE
     Route: 048
  8. CARVEDILOL [Concomitant]
     Indication: CARDIAC FAILURE
     Route: 048
     Dates: start: 20110429
  9. MAGNESIUM OXIDE [Concomitant]
     Indication: HYPOMAGNESAEMIA
     Route: 048

REACTIONS (5)
  - Renal failure [Not Recovered/Not Resolved]
  - Tumour lysis syndrome [Recovered/Resolved]
  - Escherichia bacteraemia [Not Recovered/Not Resolved]
  - Diarrhoea [Recovered/Resolved with Sequelae]
  - Pyrexia [Recovered/Resolved]
